FAERS Safety Report 6748683-5 (Version None)
Quarter: 2010Q2

REPORT INFORMATION
  Report Type: 
  Country: None (occurrence: None)
  Receive Date: 20100601
  Receipt Date: 20100520
  Transmission Date: 20101027
  Serious: Yes (Other)
  Sender: FDA-Public Use
  Company Number: CA-JNJFOC-20100407922

PATIENT
  Sex: Female
  Weight: 111.4 kg

DRUGS (8)
  1. REMICADE [Suspect]
     Indication: COLITIS ULCERATIVE
     Dosage: 9TH INFUSION
     Route: 042
  2. REMICADE [Suspect]
     Route: 042
  3. NYSTATIN [Concomitant]
  4. IMURAN [Concomitant]
  5. PREDNISONE TAB [Concomitant]
  6. MESALAMINE [Concomitant]
  7. FERROUS SULFATE TAB [Concomitant]
  8. CALCIUM CARBONATE [Concomitant]

REACTIONS (1)
  - WOUND [None]
